FAERS Safety Report 15579415 (Version 1)
Quarter: 2018Q4

REPORT INFORMATION
  Report Type: Spontaneous
  Country: JP (occurrence: JP)
  Receive Date: 20181102
  Receipt Date: 20181102
  Transmission Date: 20190205
  Serious: Yes (Hospitalization)
  Sender: FDA-Public Use
  Company Number: JP-LANNETT COMPANY, INC.-JP-2018LAN001260

PATIENT
  Age: 73 Year
  Sex: Female

DRUGS (3)
  1. ESCITALOPRAM OXALATE. [Suspect]
     Active Substance: ESCITALOPRAM OXALATE
     Indication: PRODUCT USED FOR UNKNOWN INDICATION
     Dosage: UNK
     Route: 065
  2. ADRENALINE                         /00003901/ [Suspect]
     Active Substance: EPINEPHRINE
     Indication: PRODUCT USED FOR UNKNOWN INDICATION
     Dosage: UNK
     Route: 065
  3. LORAZEPAM. [Suspect]
     Active Substance: LORAZEPAM
     Indication: PRODUCT USED FOR UNKNOWN INDICATION
     Dosage: UNK
     Route: 065

REACTIONS (5)
  - Pulseless electrical activity [Recovered/Resolved]
  - Haemodynamic instability [Recovered/Resolved]
  - Cardiac arrest [Recovered/Resolved]
  - Left ventricle outflow tract obstruction [Recovered/Resolved]
  - Cardiogenic shock [Recovered/Resolved]
